FAERS Safety Report 6125945-6 (Version None)
Quarter: 2009Q1

REPORT INFORMATION
  Report Type: 
  Country: None (occurrence: None)
  Receive Date: 20090320
  Receipt Date: 20090311
  Transmission Date: 20090719
  Serious: Yes (Hospitalization, Other)
  Sender: FDA-Public Use
  Company Number: PHHO2009US03498

PATIENT
  Age: 77 Year
  Sex: Male
  Weight: 85 kg

DRUGS (10)
  1. METOPROLOL TARTRATE [Suspect]
  2. BLINDED NO TREATMENT RECEIVED NOMED [Suspect]
     Indication: METASTASES TO BONE
     Dosage: DOUBLE BLIND
     Route: 042
     Dates: start: 20071024, end: 20080429
  3. BLINDED PLACEBO COMP-PLA+ [Suspect]
     Indication: METASTASES TO BONE
     Dosage: DOUBLE BLIND
     Route: 042
     Dates: start: 20071024, end: 20080429
  4. BLINDED ZOLEDRONATE T29581+SOLINF [Suspect]
     Indication: METASTASES TO BONE
     Dosage: DOUBLE BLIND
     Route: 042
     Dates: start: 20071024, end: 20080429
  5. WARFARIN SODIUM [Suspect]
  6. BETAHISTINE [Suspect]
  7. RAMIPRIL [Suspect]
  8. CALCIUM CARBONATE [Suspect]
  9. VITAMIN D [Concomitant]
  10. ASPIRIN [Concomitant]

REACTIONS (18)
  - AMNESIA [None]
  - CEREBRAL DISORDER [None]
  - CEREBRAL ISCHAEMIA [None]
  - CEREBROVASCULAR ACCIDENT [None]
  - CONFUSIONAL STATE [None]
  - DIZZINESS [None]
  - DYSARTHRIA [None]
  - DYSPHASIA [None]
  - EYE PAIN [None]
  - FACIAL PALSY [None]
  - HEMIPARESIS [None]
  - HYPERTENSION [None]
  - HYPOAESTHESIA [None]
  - LEFT VENTRICULAR HYPERTROPHY [None]
  - LOSS OF CONSCIOUSNESS [None]
  - PHOTOPHOBIA [None]
  - TRANSIENT ISCHAEMIC ATTACK [None]
  - VISUAL FIELD DEFECT [None]
